FAERS Safety Report 18740037 (Version 1)
Quarter: 2021Q1

REPORT INFORMATION
  Report Type: Spontaneous
  Country: US (occurrence: US)
  Receive Date: 20210113
  Receipt Date: 20210113
  Transmission Date: 20210419
  Serious: Yes (Hospitalization)
  Sender: FDA-Public Use
  Company Number: None

PATIENT
  Age: 72 Year
  Sex: Male
  Weight: 105 kg

DRUGS (2)
  1. CASIRIVIMAB/IMDEVIMAB (EUA) (CASIRIVIMAB?1200MG/IMDEVIMAB 1200MG (EUA) [Suspect]
     Active Substance: CASIRIVIMAB\IMDEVIMAB
     Indication: COVID-19
  2. CASIRIVIMAB/IMDEVIMAB (EUA) (CASIRIVIMAB?1200MG/IMDEVIMAB 1200MG (EUA) [Suspect]
     Active Substance: CASIRIVIMAB\IMDEVIMAB
     Indication: CARDIAC FAILURE CONGESTIVE
     Route: 042
     Dates: start: 20201229, end: 20201229

REACTIONS (2)
  - Right ventricular dysfunction [None]
  - Pulmonary embolism [None]
